FAERS Safety Report 15074603 (Version 1)
Quarter: 2018Q2

REPORT INFORMATION
  Report Type: Spontaneous
  Country: US (occurrence: US)
  Receive Date: 20180607
  Receipt Date: 20180607
  Transmission Date: 20180711
  Serious: No
  Sender: FDA-Public Use
  Company Number: None

PATIENT
  Age: 39 Year
  Sex: Female
  Weight: 47.25 kg

DRUGS (4)
  1. BIOTIN [Concomitant]
     Active Substance: BIOTIN
  2. MULTIVITAMINS [Concomitant]
     Active Substance: VITAMINS
  3. PRENATAL [Concomitant]
     Active Substance: VITAMINS
  4. ENTYVIO [Suspect]
     Active Substance: VEDOLIZUMAB
     Indication: COLITIS ULCERATIVE
     Dosage: 1 INFUSION; ZERO, TWO AND SIX

REACTIONS (1)
  - Alopecia [None]

NARRATIVE: CASE EVENT DATE: 20180422
